FAERS Safety Report 14274265 (Version 1)
Quarter: 2017Q4

REPORT INFORMATION
  Report Type: Spontaneous
  Country: DE (occurrence: DE)
  Receive Date: 20171211
  Receipt Date: 20171211
  Transmission Date: 20180321
  Serious: Yes (Other)
  Sender: FDA-Public Use
  Company Number: DE-OTSUKA-DJ20070106

PATIENT
  Age: 21 Year
  Sex: Male
  Weight: 70 kg

DRUGS (4)
  1. ABILIFY [Suspect]
     Active Substance: ARIPIPRAZOLE
     Indication: PSYCHOTIC DISORDER
     Dosage: 70 MG, UNK
     Route: 065
     Dates: start: 20061124, end: 20061125
  2. ABILIFY [Suspect]
     Active Substance: ARIPIPRAZOLE
     Indication: SUBSTANCE-INDUCED PSYCHOTIC DISORDER
     Dosage: 10 MG, UNK
     Route: 065
     Dates: end: 20061123
  3. TETRAHYDROCANNABINOL [Suspect]
     Active Substance: DRONABINOL
     Dosage: UNK
     Route: 065
     Dates: start: 20061124, end: 20061125
  4. METHAMPHETAMINE HCL [Suspect]
     Active Substance: METHAMPHETAMINE HYDROCHLORIDE
     Dosage: UNK
     Route: 065
     Dates: start: 20061124, end: 20061125

REACTIONS (12)
  - Conjunctival hyperaemia [Recovered/Resolved]
  - Drug abuser [Unknown]
  - Mydriasis [Recovered/Resolved]
  - Drug abuse [Recovered/Resolved]
  - Palpitations [Recovered/Resolved]
  - Overdose [Unknown]
  - Vertigo [Recovered/Resolved]
  - Erythema [Recovered/Resolved]
  - Restlessness [Recovered/Resolved]
  - Pain [Recovered/Resolved]
  - Insomnia [Recovered/Resolved]
  - Nausea [Recovered/Resolved]

NARRATIVE: CASE EVENT DATE: 20061124
